FAERS Safety Report 6909991-8 (Version None)
Quarter: 2010Q3

REPORT INFORMATION
  Report Type: 
  Country: None (occurrence: None)
  Receive Date: 20100806
  Receipt Date: 20100726
  Transmission Date: 20110219
  Serious: No
  Sender: FDA-Public Use
  Company Number: US-BIOGENIDEC-2010BI025476

PATIENT
  Sex: Female

DRUGS (1)
  1. AVONEX [Suspect]
     Indication: MULTIPLE SCLEROSIS
     Route: 030
     Dates: start: 20100107

REACTIONS (9)
  - ABASIA [None]
  - BACK DISORDER [None]
  - BACK PAIN [None]
  - BURNING SENSATION [None]
  - CHRONIC OBSTRUCTIVE PULMONARY DISEASE [None]
  - EMPHYSEMA [None]
  - FIBROMYALGIA [None]
  - HYPERSENSITIVITY [None]
  - MUSCULAR WEAKNESS [None]
